FAERS Safety Report 23215358 (Version 1)
Quarter: 2023Q4

REPORT INFORMATION
  Report Type: Spontaneous
  Country: US (occurrence: US)
  Receive Date: 20231122
  Receipt Date: 20231122
  Transmission Date: 20240110
  Serious: No
  Sender: FDA-Public Use
  Company Number: US-AMGEN-USASP2023205973

PATIENT
  Sex: Male

DRUGS (3)
  1. TAVNEOS [Suspect]
     Active Substance: AVACOPAN
     Indication: Anti-neutrophil cytoplasmic antibody positive vasculitis
     Dosage: 30 MILLIGRAM, BID (3 10MG CAPSULES BID WITH FOOD)
     Route: 048
  2. TAVNEOS [Suspect]
     Active Substance: AVACOPAN
     Dosage: 10 MILLIGRAM, QD (10MG CAPSULES ONCE A DAY)
     Route: 048
  3. TAVNEOS [Suspect]
     Active Substance: AVACOPAN
     Dosage: 30 MILLIGRAM, BID (3 10MG CAPSULES BID WITH FOOD)
     Route: 048

REACTIONS (1)
  - Diarrhoea [Recovered/Resolved]
